FAERS Safety Report 24040220 (Version 3)
Quarter: 2024Q3

REPORT INFORMATION
  Report Type: Spontaneous
  Country: US (occurrence: US)
  Receive Date: 20240702
  Receipt Date: 20240813
  Transmission Date: 20241017
  Serious: No
  Sender: TOLMAR
  Company Number: US-TOLMAR, INC.-24US049859

PATIENT
  Sex: Male

DRUGS (1)
  1. ELIGARD [Suspect]
     Active Substance: LEUPROLIDE ACETATE
     Indication: Prostate cancer
     Dosage: 30 MILLIGRAM, Q 4 MONTH
     Route: 058

REACTIONS (2)
  - Intercepted product administration error [Unknown]
  - Syringe issue [Unknown]
